FAERS Safety Report 7744136-6 (Version None)
Quarter: 2011Q3

REPORT INFORMATION
  Report Type: 
  Country: None (occurrence: None)
  Receive Date: 20110912
  Receipt Date: 20110902
  Transmission Date: 20111222
  Serious: Yes (Death)
  Sender: FDA-Public Use
  Company Number: EC-BAXTER-2011BH028631

PATIENT
  Age: 61 Year
  Sex: Female

DRUGS (4)
  1. PERITONEAL DIALYSIS SOLUTION [Concomitant]
     Route: 033
  2. BUMINATE 25% [Suspect]
     Indication: PRODUCT USED FOR UNKNOWN INDICATION
     Route: 065
  3. EPOGEN [Concomitant]
     Indication: PRODUCT USED FOR UNKNOWN INDICATION
     Route: 065
  4. PERITONEAL DIALYSIS SOLUTION [Concomitant]
     Indication: RENAL FAILURE
     Route: 033

REACTIONS (3)
  - CHILLS [None]
  - DYSPNOEA [None]
  - DEATH [None]
